FAERS Safety Report 6237425-8 (Version None)
Quarter: 2009Q2

REPORT INFORMATION
  Report Type: 
  Country: None (occurrence: None)
  Receive Date: 20090619
  Receipt Date: 20090608
  Transmission Date: 20091009
  Serious: Yes (Hospitalization)
  Sender: FDA-Public Use
  Company Number: US-ELI_LILLY_AND_COMPANY-US200906002169

PATIENT
  Sex: Female

DRUGS (9)
  1. CYMBALTA [Suspect]
     Indication: DEPRESSION
     Dosage: 30 MG, DAILY (1/D)
     Dates: start: 20070601
  2. ZESTRIL [Concomitant]
  3. ULTRAM [Concomitant]
  4. DIFLUCAN [Concomitant]
  5. LASIX [Concomitant]
     Indication: FLUID RETENTION
     Route: 042
     Dates: start: 20090602, end: 20090603
  6. DITROPAN /USA/ [Concomitant]
  7. NORVASC [Concomitant]
  8. LOPRESSOR [Concomitant]
  9. GLUCOPHAGE [Concomitant]

REACTIONS (10)
  - ANXIETY [None]
  - CHEST DISCOMFORT [None]
  - DEPRESSION [None]
  - DRUG INEFFECTIVE [None]
  - DYSPNOEA [None]
  - JOINT INJURY [None]
  - NEPHROLITHIASIS [None]
  - PANIC ATTACK [None]
  - POOR QUALITY SLEEP [None]
  - TEARFULNESS [None]
